FAERS Safety Report 15459078 (Version 1)
Quarter: 2018Q4

REPORT INFORMATION
  Report Type: Spontaneous
  Country: SE (occurrence: SE)
  Receive Date: 20181003
  Receipt Date: 20181003
  Transmission Date: 20190204
  Serious: Yes (Other)
  Sender: FDA-Public Use
  Company Number: PHHY2018SE110655

PATIENT
  Age: 11 Year
  Sex: Male
  Weight: 70 kg

DRUGS (2)
  1. RITALIN [Suspect]
     Active Substance: METHYLPHENIDATE HYDROCHLORIDE
     Indication: AUTISM SPECTRUM DISORDER
     Dosage: 1 OT, QD
     Route: 065
     Dates: start: 20160501, end: 20180615
  2. RITALIN [Suspect]
     Active Substance: METHYLPHENIDATE HYDROCHLORIDE
     Indication: DEVELOPMENTAL DELAY

REACTIONS (1)
  - Obsessive-compulsive disorder [Recovered/Resolved]

NARRATIVE: CASE EVENT DATE: 201610
